FAERS Safety Report 6696012-8 (Version None)
Quarter: 2010Q2

REPORT INFORMATION
  Report Type: 
  Country: None (occurrence: None)
  Receive Date: 20100423
  Receipt Date: 20100423
  Transmission Date: 20101027
  Serious: Yes (Hospitalization)
  Sender: FDA-Public Use
  Company Number: None

PATIENT
  Sex: Male
  Weight: 100.9 kg

DRUGS (1)
  1. EFFIENT [Suspect]
     Indication: STENT PLACEMENT
     Dosage: 10 MG DAILY PO
     Route: 048
     Dates: start: 20100215, end: 20100223

REACTIONS (3)
  - DIZZINESS [None]
  - FAECES HARD [None]
  - GASTRIC ULCER [None]
